FAERS Safety Report 9482257 (Version 4)
Quarter: 2014Q1

REPORT INFORMATION
  Report Type: Spontaneous
  Country: US (occurrence: US)
  Receive Date: 20130828
  Receipt Date: 20140305
  Transmission Date: 20141002
  Serious: Yes (Death, Hospitalization, Other)
  Sender: FDA-Public Use
  Company Number: US-ASTELLAS-2013US009124

PATIENT
  Age: 46 Year
  Sex: Male
  Weight: 82 kg

DRUGS (12)
  1. PROGRAF [Suspect]
     Indication: HEART TRANSPLANT
     Dosage: 5 MG, BID
     Route: 048
     Dates: start: 20111228, end: 20130130
  2. CELLCEPT                           /01275102/ [Concomitant]
     Indication: PRODUCT USED FOR UNKNOWN INDICATION
     Dosage: 1 MG, BID
     Route: 048
  3. POTASSIUM CHLORIDE [Concomitant]
     Indication: PRODUCT USED FOR UNKNOWN INDICATION
     Dosage: 20 MEQ, BID
     Route: 048
  4. ASPIRIN [Concomitant]
     Indication: PRODUCT USED FOR UNKNOWN INDICATION
     Dosage: 81 MG, UID/QD
     Route: 048
  5. ACYCLOVIR                          /00587301/ [Concomitant]
     Indication: PRODUCT USED FOR UNKNOWN INDICATION
     Dosage: 400 MG, BID
     Route: 048
  6. SLOW-MAG [Concomitant]
     Indication: PRODUCT USED FOR UNKNOWN INDICATION
     Dosage: 64 MG, BID
     Route: 048
  7. PRAVASTATIN [Concomitant]
     Indication: PRODUCT USED FOR UNKNOWN INDICATION
     Dosage: 20 MG, QHS
     Route: 048
  8. CELEXA                             /00582602/ [Concomitant]
     Indication: PRODUCT USED FOR UNKNOWN INDICATION
     Dosage: 20 MG, UID/QD
     Route: 048
  9. PEPCID                             /00706001/ [Concomitant]
     Indication: PRODUCT USED FOR UNKNOWN INDICATION
     Dosage: 20 MG, UID/QD
     Route: 048
  10. CITRACAL + D                       /01438101/ [Concomitant]
     Indication: PRODUCT USED FOR UNKNOWN INDICATION
     Dosage: 1 DF, BID
     Route: 048
  11. MULTIVITAMINS [Concomitant]
     Indication: PRODUCT USED FOR UNKNOWN INDICATION
     Dosage: 1 DF, UID/QD
     Route: 048
  12. FERROUS SULFATE [Concomitant]
     Indication: ANAEMIA
     Dosage: 325 MG, UID/QD
     Route: 048
     Dates: end: 20121119

REACTIONS (14)
  - Drug ineffective [Unknown]
  - Transplant failure [Fatal]
  - Arteriosclerosis coronary artery [Fatal]
  - Pulmonary congestion [Unknown]
  - Pulmonary hypertension [Unknown]
  - Cardiac arrest [Fatal]
  - Transplant rejection [Not Recovered/Not Resolved]
  - Tonic convulsion [Unknown]
  - Arrhythmia supraventricular [Unknown]
  - Transplant rejection [Unknown]
  - Pericardial effusion [Unknown]
  - Anaemia [Recovering/Resolving]
  - Dyspnoea [Unknown]
  - Presyncope [Unknown]
